FAERS Safety Report 4387745-7 (Version None)
Quarter: 2004Q2

REPORT INFORMATION
  Report Type: 
  Country: None (occurrence: None)
  Receive Date: 20040625
  Receipt Date: 20040615
  Transmission Date: 20050107
  Serious: Yes (Hospitalization)
  Sender: FDA-Public Use
  Company Number: PHNU2003DE03978

PATIENT
  Sex: Female

DRUGS (1)
  1. VISUDYNE [Suspect]
     Dates: start: 20031107, end: 20031107

REACTIONS (1)
  - MEDICATION ERROR [None]
